FAERS Safety Report 7966401-X (Version None)
Quarter: 2011Q4

REPORT INFORMATION
  Report Type: 
  Country: None (occurrence: None)
  Receive Date: 20111208
  Receipt Date: 20111128
  Transmission Date: 20120403
  Serious: Yes (Hospitalization)
  Sender: FDA-Public Use
  Company Number: SE-BAXTER-2011BH036564

PATIENT
  Age: 78 Year
  Sex: Male
  Weight: 50 kg

DRUGS (8)
  1. FEIBA [Suspect]
     Indication: ADVERSE EVENT
     Route: 042
     Dates: start: 20110929, end: 20110929
  2. FEIBA [Suspect]
     Route: 042
     Dates: start: 20111001, end: 20111001
  3. FEIBA [Suspect]
     Indication: FACTOR VIII DEFICIENCY
     Route: 042
     Dates: start: 20110929, end: 20110929
  4. FEIBA [Suspect]
     Route: 042
     Dates: start: 20110930, end: 20110930
  5. FEIBA [Concomitant]
     Indication: HAEMOSTASIS
     Route: 042
     Dates: start: 20070701, end: 20110301
  6. ANTIHEMOPHILIC FACTOR NOS [Concomitant]
     Indication: HAEMOSTASIS
     Route: 042
     Dates: start: 20060501, end: 20070701
  7. FEIBA [Suspect]
     Route: 042
     Dates: start: 20110930, end: 20110930
  8. FEIBA [Suspect]
     Route: 042
     Dates: start: 20111001, end: 20111001

REACTIONS (4)
  - FACIAL BONES FRACTURE [None]
  - FALL [None]
  - CEREBRAL HAEMORRHAGE [None]
  - FACE INJURY [None]
